FAERS Safety Report 18648562 (Version 1)
Quarter: 2020Q4

REPORT INFORMATION
  Report Type: Spontaneous
  Country: CA (occurrence: CA)
  Receive Date: 20201222
  Receipt Date: 20201222
  Transmission Date: 20210114
  Serious: Yes (Other)
  Sender: FDA-Public Use
  Company Number: CA-APOTEX-2020AP024135

PATIENT
  Age: 15 Year
  Sex: Male

DRUGS (9)
  1. VALPROIC ACID. [Suspect]
     Active Substance: VALPROIC ACID
     Indication: SEIZURE
     Dosage: TITRATION AT 500 MG
     Route: 065
     Dates: start: 2016
  2. VALPROIC ACID. [Suspect]
     Active Substance: VALPROIC ACID
     Dosage: 650 MILLIGRAM, BID
     Route: 065
     Dates: start: 2016, end: 2017
  3. CLOBAZAM. [Suspect]
     Active Substance: CLOBAZAM
     Dosage: TITRATION TO 15 MG, QD
     Route: 048
     Dates: start: 2015, end: 2016
  4. LORAZEPAM. [Concomitant]
     Active Substance: LORAZEPAM
     Indication: SEIZURE
     Dosage: UNK UNK, PRN
     Route: 060
     Dates: start: 2013
  5. LAMOTRIGINE. [Concomitant]
     Active Substance: LAMOTRIGINE
     Indication: SEIZURE
     Dosage: 150 MILLIGRAM, BID
     Route: 048
     Dates: start: 2017
  6. CARBAMAZEPINE. [Suspect]
     Active Substance: CARBAMAZEPINE
     Dosage: 400 MILLIGRAM, Q.AM
     Route: 048
     Dates: start: 2013, end: 2015
  7. LAMOTRIGINE. [Concomitant]
     Active Substance: LAMOTRIGINE
     Indication: MOOD ALTERED
  8. CARBAMAZEPINE. [Suspect]
     Active Substance: CARBAMAZEPINE
     Indication: SEIZURE
     Dosage: 200 MILLIGRAM, Q.AM
     Route: 048
     Dates: start: 2013, end: 2015
  9. VALPROIC ACID. [Suspect]
     Active Substance: VALPROIC ACID
     Indication: MOOD ALTERED
     Dosage: TITRATION 250 MG TO 375 MG BID
     Route: 065
     Dates: start: 2016

REACTIONS (6)
  - Tremor [Unknown]
  - Suicidal ideation [Unknown]
  - Gastrooesophageal reflux disease [Unknown]
  - Alopecia [Unknown]
  - Weight increased [Unknown]
  - Abdominal discomfort [Unknown]

NARRATIVE: CASE EVENT DATE: 2015
